FAERS Safety Report 18366519 (Version 1)
Quarter: 2020Q4

REPORT INFORMATION
  Report Type: Spontaneous
  Country: FR (occurrence: FR)
  Receive Date: 20201009
  Receipt Date: 20201009
  Transmission Date: 20210114
  Serious: Yes (Hospitalization)
  Sender: FDA-Public Use
  Company Number: NVSC2020FR269601

PATIENT
  Age: 38 Year
  Sex: Female

DRUGS (1)
  1. PARACETAMOL [Suspect]
     Active Substance: ACETAMINOPHEN
     Indication: MIGRAINE
     Dosage: PATIENT TOOK ONE PACK OF PARACETAMOL IN ACONTEXT OF MIGRAINE WITH PROGRESSIVE AGGRAVATION
     Route: 065

REACTIONS (1)
  - Hepatomegaly [Unknown]
